FAERS Safety Report 13433270 (Version 7)
Quarter: 2017Q2

REPORT INFORMATION
  Report Type: Report from Study
  Country: US (occurrence: US)
  Receive Date: 20170412
  Receipt Date: 20170619
  Transmission Date: 20170830
  Serious: Yes (Hospitalization)
  Sender: FDA-Public Use
  Company Number: US-BIOGEN-2017BI00382294

PATIENT
  Age: 52 Year
  Sex: Male

DRUGS (3)
  1. TYSABRI [Suspect]
     Active Substance: NATALIZUMAB
     Indication: MULTIPLE SCLEROSIS
     Route: 065
     Dates: start: 201309
  2. TYSABRI [Suspect]
     Active Substance: NATALIZUMAB
     Route: 065
     Dates: start: 20131121
  3. TYSABRI [Suspect]
     Active Substance: NATALIZUMAB
     Route: 065
     Dates: end: 20170219

REACTIONS (10)
  - Rhabdomyolysis [Unknown]
  - Fall [Recovered/Resolved]
  - Mobility decreased [Unknown]
  - General physical health deterioration [Unknown]
  - Asthenia [Unknown]
  - Hyperthermia malignant [Unknown]
  - Cellulitis [Unknown]
  - Neuroleptic malignant syndrome [Unknown]
  - Urinary tract infection [Recovered/Resolved]
  - Myoglobinuria [Recovered/Resolved]

NARRATIVE: CASE EVENT DATE: 201702
